FAERS Safety Report 17026608 (Version 1)
Quarter: 2019Q4

REPORT INFORMATION
  Report Type: Spontaneous
  Country: US (occurrence: US)
  Receive Date: 20191009
  Receipt Date: 20191009
  Transmission Date: 20200122
  Serious: Yes (Hospitalization)
  Sender: FDA-Public Use
  Company Number: None

PATIENT
  Age: 58 Year
  Sex: Female

DRUGS (14)
  1. DULOXETINE. [Concomitant]
     Active Substance: DULOXETINE
  2. FLUTICASONE. [Concomitant]
     Active Substance: FLUTICASONE
  3. FOLIC ACID. [Concomitant]
     Active Substance: FOLIC ACID
  4. ROSUVASTATIN. [Concomitant]
     Active Substance: ROSUVASTATIN
  5. VASCEPA [Concomitant]
     Active Substance: ICOSAPENT ETHYL
  6. HUMALOG [Suspect]
     Active Substance: INSULIN LISPRO
  7. CEFDINIR. [Concomitant]
     Active Substance: CEFDINIR
  8. LISINOPRIL. [Concomitant]
     Active Substance: LISINOPRIL
  9. ALPRAZOLAM. [Concomitant]
     Active Substance: ALPRAZOLAM
  10. STELARA [Suspect]
     Active Substance: USTEKINUMAB
     Indication: CROHN^S DISEASE
     Dosage: Q8WEEKS
     Route: 058
     Dates: start: 201805
  11. TRAZODONE [Concomitant]
     Active Substance: TRAZODONE HYDROCHLORIDE
  12. ESOMEPRAZOLE. [Concomitant]
     Active Substance: ESOMEPRAZOLE MAGNESIUM
  13. BUPROPION. [Concomitant]
     Active Substance: BUPROPION
  14. MULTIVITAMINS [Concomitant]
     Active Substance: VITAMINS

REACTIONS (1)
  - Urinary tract infection [None]

NARRATIVE: CASE EVENT DATE: 20191001
